FAERS Safety Report 21290378 (Version 2)
Quarter: 2022Q3

REPORT INFORMATION
  Report Type: Spontaneous
  Country: NZ (occurrence: NZ)
  Receive Date: 20220902
  Receipt Date: 20220928
  Transmission Date: 20221027
  Serious: Yes (Other)
  Sender: FDA-Public Use
  Company Number: NZ-PFIZER INC-202201099584

PATIENT
  Age: 46 Year
  Sex: Female

DRUGS (1)
  1. ENBREL [Suspect]
     Active Substance: ETANERCEPT
     Indication: Product used for unknown indication
     Dosage: UNK
     Route: 065

REACTIONS (8)
  - Drug dependence [Unknown]
  - Soft tissue infection [Unknown]
  - Malaise [Unknown]
  - Herpes zoster [Unknown]
  - Paraesthesia [Unknown]
  - Scar [Unknown]
  - Varicella [Unknown]
  - Musculoskeletal stiffness [Unknown]
